FAERS Safety Report 6403449-0 (Version None)
Quarter: 2009Q4

REPORT INFORMATION
  Report Type: 
  Country: None (occurrence: None)
  Receive Date: 20091013
  Receipt Date: 20090904
  Transmission Date: 20100525
  Serious: Yes (Death)
  Sender: FDA-Public Use
  Company Number: 2009US003158

PATIENT
  Age: 4 Month
  Sex: Male

DRUGS (4)
  1. AMBISOME [Suspect]
     Indication: FUNGAL INFECTION
     Dosage: 2.5 MG/KG, IV NOS
     Route: 042
     Dates: start: 20090801, end: 20090804
  2. DOPAMINE HCL [Concomitant]
  3. MYOCOR (GLYCERYL TRINITRATE) [Concomitant]
  4. VANCOMYCIN [Concomitant]

REACTIONS (3)
  - BONE MARROW FAILURE [None]
  - DISSEMINATED INTRAVASCULAR COAGULATION [None]
  - WHITE BLOOD CELL COUNT DECREASED [None]
